FAERS Safety Report 5195570-2 (Version None)
Quarter: 2007Q1

REPORT INFORMATION
  Report Type: 
  Country: None (occurrence: None)
  Receive Date: 20070102
  Receipt Date: 20061220
  Transmission Date: 20070707
  Serious: Yes (Hospitalization)
  Sender: FDA-Public Use
  Company Number: DE-BRISTOL-MYERS SQUIBB COMPANY-13579305

PATIENT
  Age: 64 Year
  Sex: Female

DRUGS (5)
  1. ENDOXAN [Suspect]
     Indication: BREAST CANCER
     Dates: start: 20060825, end: 20060825
  2. EPIRUBICIN [Suspect]
     Indication: BREAST CANCER
     Dates: start: 20060825, end: 20060825
  3. FLUOROURACIL [Suspect]
     Indication: BREAST CANCER
     Dates: start: 20060825, end: 20060825
  4. SODIUM CHLORIDE [Concomitant]
  5. GLUCOSE [Concomitant]

REACTIONS (5)
  - CONSTIPATION [None]
  - ERYTHEMA [None]
  - EXTRAVASATION [None]
  - LEUKOPENIA [None]
  - THROMBOPHLEBITIS SUPERFICIAL [None]
